FAERS Safety Report 10631843 (Version 1)
Quarter: 2014Q4

REPORT INFORMATION
  Report Type: Spontaneous
  Country: US (occurrence: US)
  Receive Date: 20141205
  Receipt Date: 20141205
  Transmission Date: 20150529
  Serious: No
  Sender: FDA-Public Use
  Company Number: US-BRISTOL-MYERS SQUIBB COMPANY-21507009

PATIENT
  Age: 47 Year
  Sex: Female
  Weight: 97.05 kg

DRUGS (1)
  1. FARXIGA [Suspect]
     Active Substance: DAPAGLIFLOZIN PROPANEDIOL
     Indication: TYPE 2 DIABETES MELLITUS
     Dosage: 10 MG TABS
     Route: 048
     Dates: start: 201409

REACTIONS (1)
  - Fungal infection [Unknown]

NARRATIVE: CASE EVENT DATE: 201409
